FAERS Safety Report 8075369-X (Version None)
Quarter: 2012Q1

REPORT INFORMATION
  Report Type: 
  Country: None (occurrence: None)
  Receive Date: 20120120
  Receipt Date: 20120110
  Transmission Date: 20120608
  Serious: No
  Sender: FDA-Public Use
  Company Number: 2012SP002799

PATIENT
  Age: 44 Year
  Sex: Male

DRUGS (1)
  1. SAPHRIS [Suspect]
     Indication: PRODUCT USED FOR UNKNOWN INDICATION
     Dosage: 10 MG; ONCE; SL
     Route: 060
     Dates: start: 20111229, end: 20111229

REACTIONS (3)
  - PRODUCT SOLUBILITY ABNORMAL [None]
  - SWOLLEN TONGUE [None]
  - DYSARTHRIA [None]
